FAERS Safety Report 20765466 (Version 1)
Quarter: 2022Q2

REPORT INFORMATION
  Report Type: Spontaneous
  Country: US (occurrence: US)
  Receive Date: 20220428
  Receipt Date: 20220428
  Transmission Date: 20220721
  Serious: No
  Sender: FDA-Public Use
  Company Number: US-PFIZER INC-202200101346

PATIENT
  Age: 82 Year
  Sex: Male

DRUGS (1)
  1. GABAPENTIN [Suspect]
     Active Substance: GABAPENTIN
     Dosage: UNK

REACTIONS (4)
  - Off label use [Unknown]
  - Muscle spasms [Unknown]
  - Therapy cessation [Unknown]
  - Memory impairment [Unknown]
